FAERS Safety Report 22051557 (Version 3)
Quarter: 2023Q1

REPORT INFORMATION
  Report Type: Spontaneous
  Country: US (occurrence: US)
  Receive Date: 20230301
  Receipt Date: 20230329
  Transmission Date: 20230417
  Serious: Yes (Other)
  Sender: FDA-Public Use
  Company Number: ENDG23-00910

PATIENT
  Sex: Female

DRUGS (1)
  1. CLONAZEPAM [Suspect]
     Active Substance: CLONAZEPAM
     Indication: Product used for unknown indication
     Dosage: 4 DF, QHS (4 TABLETS A NIGHT)
     Route: 048

REACTIONS (2)
  - Diabetes mellitus [Unknown]
  - Product dispensing error [Unknown]
